FAERS Safety Report 23771948 (Version 2)
Quarter: 2024Q2

REPORT INFORMATION
  Report Type: Report from Study
  Country: NL (occurrence: NL)
  Receive Date: 20240423
  Receipt Date: 20240510
  Transmission Date: 20240715
  Serious: Yes (Death, Hospitalization)
  Sender: FDA-Public Use
  Company Number: NL-ABBVIE-5593579

PATIENT
  Sex: Female

DRUGS (15)
  1. CARBIDOPA\LEVODOPA [Suspect]
     Active Substance: CARBIDOPA\LEVODOPA
     Indication: Parkinson^s disease
     Dosage: FIRST ADMIN DATE 2024?DURATION TEXT: REMAINS AT 24 HOURS
     Route: 050
     Dates: end: 20240504
  2. CARBIDOPA\LEVODOPA [Suspect]
     Active Substance: CARBIDOPA\LEVODOPA
     Dosage: MD: 9.0ML, CD: 3.1ML/H, ED: 5.0ML, CND: 1.7ML/H?DURATION TEXT: REMAINS AT 24 HOURS
     Route: 050
     Dates: start: 20230920, end: 20231004
  3. CARBIDOPA\LEVODOPA [Suspect]
     Active Substance: CARBIDOPA\LEVODOPA
     Dosage: MD: 9.0ML, CD: 2.8ML/H, ED: 5.0ML, CND: 1.7ML/H?DURATION TEXT: REMAINS AT 24 HOURS
     Route: 050
     Dates: start: 20230511, end: 20230920
  4. CARBIDOPA\LEVODOPA [Suspect]
     Active Substance: CARBIDOPA\LEVODOPA
     Dosage: DURATION TEXT: REMAINS AT 24 HOURS
     Route: 050
     Dates: start: 20200907
  5. CARBIDOPA\LEVODOPA [Suspect]
     Active Substance: CARBIDOPA\LEVODOPA
     Dosage: CND: 1.9ML/H, END: 4.0ML?FREQUENCY TEXT: 100ML
     Route: 050
     Dates: start: 20231004, end: 20240206
  6. CARBIDOPA\LEVODOPA [Suspect]
     Active Substance: CARBIDOPA\LEVODOPA
     Dosage: MD: 9.0 ML, CD: 3.5 ML/H, ED: 4.0 ML, CND: 2.1 ML/H?DURATION TEXT: REMAINS AT 16 HOURS?LAST ADMIN...
     Route: 050
     Dates: start: 20240206
  7. CARBIDOPA\LEVODOPA [Suspect]
     Active Substance: CARBIDOPA\LEVODOPA
     Dosage: CND: 1.9ML/H, END: 4.0ML
     Route: 050
     Dates: start: 20231004
  8. ENTACAPONE [Concomitant]
     Active Substance: ENTACAPONE
     Indication: Parkinson^s disease
     Route: 048
     Dates: start: 20170807, end: 20200907
  9. CARBIDOPA\LEVODOPA [Concomitant]
     Active Substance: CARBIDOPA\LEVODOPA
     Indication: Parkinson^s disease
     Dosage: FORM STRENGTH: 125 MILLIGRAM
     Route: 048
     Dates: start: 20130805, end: 20200907
  10. LORAZEPAM [Concomitant]
     Active Substance: LORAZEPAM
     Indication: Tension
     Dosage: FORM STRENGTH: 1 MILLIGRAM
     Route: 048
     Dates: start: 20150803
  11. DESOXIMETASONE [Concomitant]
     Active Substance: DESOXIMETASONE
     Indication: Skin irritation
     Dates: start: 20160801
  12. ACETAMINOPHEN [Concomitant]
     Active Substance: ACETAMINOPHEN
     Indication: Pain
     Dosage: FORM STRENGTH: 500 MILLIGRAM
     Route: 048
     Dates: start: 20160808
  13. SCOPOLAMINE [Concomitant]
     Active Substance: SCOPOLAMINE
     Indication: Salivary hypersecretion
     Dates: start: 20150803
  14. FENTANYL [Concomitant]
     Active Substance: FENTANYL\FENTANYL CITRATE
     Indication: Pain
     Route: 048
     Dates: start: 20160801
  15. SINEMET [Concomitant]
     Active Substance: CARBIDOPA\LEVODOPA
     Indication: Parkinson^s disease
     Dosage: FORM STRENGTH: 62.5 MILLIGRAM
     Route: 048
     Dates: start: 20130805, end: 20200907

REACTIONS (15)
  - Productive cough [Fatal]
  - On and off phenomenon [Recovered/Resolved]
  - Muscle rigidity [Not Recovered/Not Resolved]
  - Loss of personal independence in daily activities [Not Recovered/Not Resolved]
  - Memory impairment [Not Recovered/Not Resolved]
  - Salivary hypersecretion [Not Recovered/Not Resolved]
  - Reduced facial expression [Not Recovered/Not Resolved]
  - Malaise [Not Recovered/Not Resolved]
  - Dystonia [Not Recovered/Not Resolved]
  - Dyskinesia [Not Recovered/Not Resolved]
  - Insomnia [Not Recovered/Not Resolved]
  - Speech disorder [Not Recovered/Not Resolved]
  - Restlessness [Not Recovered/Not Resolved]
  - Unevaluable event [Not Recovered/Not Resolved]
  - Pneumonia [Fatal]
